FAERS Safety Report 9401035 (Version 2)
Quarter: 2013Q3

REPORT INFORMATION
  Report Type: Spontaneous
  Country: BR (occurrence: BR)
  Receive Date: 20130715
  Receipt Date: 20130913
  Transmission Date: 20140515
  Serious: Yes (Hospitalization, Other)
  Sender: FDA-Public Use
  Company Number: PHHY2013BR074071

PATIENT
  Sex: Male
  Weight: 75 kg

DRUGS (3)
  1. VOLTAREN [Suspect]
     Indication: OSTEOARTHRITIS
     Dosage: UNK UKN, UNK
     Route: 048
  2. VOLTAREN [Suspect]
     Indication: OSTEOARTHRITIS
     Dosage: 2 DF, DAILY
     Route: 054
  3. DORFLEX [Concomitant]
     Indication: ARTHRALGIA
     Dosage: 1 DF DAILY BUT AS NEEDED

REACTIONS (5)
  - Extraskeletal ossification [Recovered/Resolved]
  - Joint swelling [Not Recovered/Not Resolved]
  - Inflammation [Not Recovered/Not Resolved]
  - Pain [Not Recovered/Not Resolved]
  - Osteoarthritis [Not Recovered/Not Resolved]
